FAERS Safety Report 8911554 (Version 1)
Quarter: 2012Q4

REPORT INFORMATION
  Report Type: 
  Country: FR (occurrence: FR)
  Receive Date: 20121115
  Receipt Date: 20121115
  Transmission Date: 20130627
  Serious: Yes (Other)
  Sender: FDA-Public Use
  Company Number: FR-PFIZER INC-2012282502

PATIENT
  Age: 63 Year
  Sex: Female

DRUGS (2)
  1. RELPAX [Suspect]
     Dosage: 20 or 40 mg thrice per week
  2. CLARADOL [Concomitant]

REACTIONS (1)
  - Glaucoma [Unknown]
